FAERS Safety Report 9280949 (Version 1)
Quarter: 2013Q2

REPORT INFORMATION
  Report Type: Spontaneous
  Country: US (occurrence: US)
  Receive Date: 20130509
  Receipt Date: 20130509
  Transmission Date: 20140414
  Serious: No
  Sender: FDA-Public Use
  Company Number: US-009507513-1305USA001317

PATIENT
  Sex: Male

DRUGS (1)
  1. SAPHRIS [Suspect]
     Indication: BIPOLAR DISORDER
     Dosage: 10MG/ONCE IN THE EVENING
     Route: 060
     Dates: start: 201303

REACTIONS (2)
  - Hypoaesthesia [Unknown]
  - Inappropriate schedule of drug administration [Unknown]
